FAERS Safety Report 8598932 (Version 3)
Quarter: 2013Q2

REPORT INFORMATION
  Report Type: Spontaneous
  Country: CN (occurrence: CN)
  Receive Date: 20120605
  Receipt Date: 20130529
  Transmission Date: 20140414
  Serious: Yes (Other)
  Sender: FDA-Public Use
  Company Number: CN-ASTRAZENECA-2012SE35184

PATIENT
  Age: 40 Year
  Sex: Female

DRUGS (2)
  1. LOSEC MUPS [Suspect]
     Route: 048
     Dates: start: 201205, end: 20120530
  2. LAMIVUDINE [Suspect]
     Indication: HEPATITIS B
     Route: 048

REACTIONS (7)
  - Dysphagia [Recovered/Resolved]
  - Fatigue [Recovered/Resolved]
  - Melaena [Unknown]
  - Abdominal distension [Recovered/Resolved]
  - Dry mouth [Recovered/Resolved]
  - Nausea [Recovered/Resolved]
  - Constipation [Recovered/Resolved]
